FAERS Safety Report 8282012-3 (Version None)
Quarter: 2012Q2

REPORT INFORMATION
  Report Type: 
  Country: None (occurrence: None)
  Receive Date: 20120413
  Receipt Date: 20120403
  Transmission Date: 20120825
  Serious: Yes (Hospitalization)
  Sender: FDA-Public Use
  Company Number: US-BAYER-201013643NA

PATIENT
  Age: 32 Year
  Sex: Female
  Weight: 95 kg

DRUGS (26)
  1. MORPHINE SULFATE [Concomitant]
     Dosage: 4 MG (DAILY DOSE), , INTRAVENOUS
     Route: 042
     Dates: start: 20070127
  2. ANTIVERT [Concomitant]
     Dosage: 50 MG (DAILY DOSE), , ORAL
     Route: 048
     Dates: start: 20070127
  3. NORVASC [Concomitant]
     Indication: PRODUCT USED FOR UNKNOWN INDICATION
     Dosage: 10 MG, QD
     Dates: start: 20070128
  4. LIPITOR [Concomitant]
     Indication: PRODUCT USED FOR UNKNOWN INDICATION
  5. WELLBUTRIN [Concomitant]
     Indication: PRODUCT USED FOR UNKNOWN INDICATION
  6. HYDRALAZINE HCL [Concomitant]
     Indication: PRODUCT USED FOR UNKNOWN INDICATION
     Dosage: 10 MG, BID
  7. GLUCOPHAGE [Concomitant]
     Indication: POLYCYSTIC OVARIES
     Dosage: UNK UNK, BID
     Dates: start: 19970101, end: 20070128
  8. UNKNOWN DRUG [Concomitant]
     Indication: HYPERTENSION
  9. UNKNOWN DRUG [Concomitant]
  10. SPIRONOLACTONE [Concomitant]
     Indication: PRODUCT USED FOR UNKNOWN INDICATION
     Dosage: 50 MG, BID
  11. EXCEDRIN (MIGRAINE) [Concomitant]
     Indication: HEADACHE
  12. VALIUM [Concomitant]
     Dosage: 2 MG (DAILY DOSE), , INTRAVENOUS
     Route: 042
     Dates: start: 20070127
  13. HEPARIN [Concomitant]
     Dates: start: 20070128
  14. UNKNOWN DRUG [Concomitant]
  15. TOPRAL [Concomitant]
     Indication: PRODUCT USED FOR UNKNOWN INDICATION
  16. BACTRIM [Concomitant]
  17. YAZ [Suspect]
     Indication: POLYCYSTIC OVARIES
     Route: 048
     Dates: start: 20020129, end: 20070128
  18. LISINOPRIL [Concomitant]
     Indication: BLOOD PRESSURE MANAGEMENT
     Dosage: 10 MG, UNK
  19. YASMIN [Suspect]
     Indication: POLYCYSTIC OVARIES
  20. ASPIRIN [Concomitant]
     Dates: start: 20070128, end: 20070131
  21. NORVASC [Concomitant]
     Dates: start: 20070101
  22. IBUPROFEN (ADVIL) [Concomitant]
     Indication: HEADACHE
     Dosage: UNK
     Dates: start: 20070127
  23. CLONIDINE [Concomitant]
  24. YASMIN [Suspect]
     Indication: ORAL CONTRACEPTION
     Dosage: UNK UNK, QD
     Route: 048
     Dates: start: 20020129, end: 20070128
  25. YAZ [Suspect]
     Indication: ORAL CONTRACEPTION
  26. PHENERGAN HCL [Concomitant]
     Dosage: 12.5 MG (DAILY DOSE), ,
     Dates: start: 20070127

REACTIONS (5)
  - DIZZINESS [None]
  - VOMITING [None]
  - VERTEBRAL ARTERY OCCLUSION [None]
  - HEADACHE [None]
  - CEREBELLAR INFARCTION [None]
